APPROVED DRUG PRODUCT: DESOGESTREL AND ETHINYL ESTRADIOL
Active Ingredient: DESOGESTREL; ETHINYL ESTRADIOL
Strength: 0.15MG,N/A;0.02MG,0.01MG
Dosage Form/Route: TABLET;ORAL-28
Application: A202296 | Product #001 | TE Code: AB
Applicant: XIROMED LLC
Approved: Aug 30, 2013 | RLD: No | RS: No | Type: RX